FAERS Safety Report 9621109 (Version 2)
Quarter: 2013Q4

REPORT INFORMATION
  Report Type: Spontaneous
  Country: US (occurrence: US)
  Receive Date: 20131015
  Receipt Date: 20131031
  Transmission Date: 20140711
  Serious: Yes (Hospitalization, Other)
  Sender: FDA-Public Use
  Company Number: US-TEVA-437280USA

PATIENT
  Sex: Female

DRUGS (10)
  1. PROAIR HFA [Suspect]
     Indication: BRONCHITIS CHRONIC
     Route: 055
     Dates: start: 201306
  2. ABILIFY [Concomitant]
     Indication: DEPRESSION
     Dosage: 1 MILLIGRAM DAILY;
  3. METFORMIN [Concomitant]
     Indication: DIABETES MELLITUS
     Dosage: 1000 MILLIGRAM DAILY;
  4. LISINOPRIL [Concomitant]
     Indication: HYPERTENSION
     Dosage: 20 MILLIGRAM DAILY;
  5. NEXIUM [Concomitant]
     Indication: GASTROOESOPHAGEAL REFLUX DISEASE
  6. FUROSEMIDE [Concomitant]
  7. CITALOPRAM [Concomitant]
     Indication: ANXIETY
  8. OXYBUTYNIN [Concomitant]
     Indication: DYSURIA
  9. POTASSIUM [Concomitant]
     Dosage: 2 10 MEQ IN AM
  10. TUMS [Concomitant]

REACTIONS (3)
  - Asthma [Unknown]
  - Pneumonia [Unknown]
  - Bronchitis chronic [Unknown]
